FAERS Safety Report 17433713 (Version 3)
Quarter: 2020Q1

REPORT INFORMATION
  Report Type: Spontaneous
  Country: JP (occurrence: JP)
  Receive Date: 20200219
  Receipt Date: 20200309
  Transmission Date: 20200409
  Serious: Yes (Hospitalization)
  Sender: FDA-Public Use
  Company Number: JP-ACTELION-A-CH2020-201762

PATIENT
  Age: 67 Year
  Sex: Female

DRUGS (17)
  1. PROGRAF [Concomitant]
     Active Substance: TACROLIMUS
  2. LANSOPRAZOLE. [Concomitant]
     Active Substance: LANSOPRAZOLE
  3. BAYASPIRIN [Concomitant]
     Active Substance: ASPIRIN
  4. MEDICON [Concomitant]
     Active Substance: DEXTROMETHORPHAN HYDROBROMIDE
  5. DAIPHEN [Concomitant]
     Active Substance: SULFAMETHOXAZOLE\TRIMETHOPRIM
  6. JUVELA N [Concomitant]
     Active Substance: TOCOPHERYL NICOTINATE, D-.ALPHA.
  7. MUCOSOLVAN L [Concomitant]
     Active Substance: AMBROXOL HYDROCHLORIDE
  8. PITAVASTATIN CA [Concomitant]
     Active Substance: PITAVASTATIN CALCIUM
  9. HALCION [Concomitant]
     Active Substance: TRIAZOLAM
  10. IMURAN [Concomitant]
     Active Substance: AZATHIOPRINE
  11. OPSUMIT [Suspect]
     Active Substance: MACITENTAN
     Indication: PULMONARY ARTERIAL HYPERTENSION
     Dosage: 10 MG, QD
     Route: 048
     Dates: start: 20161021
  12. PREDNISOLONE. [Concomitant]
     Active Substance: PREDNISOLONE
  13. OPSUMIT [Suspect]
     Active Substance: MACITENTAN
     Dosage: 5 MG, QD
     Route: 048
     Dates: start: 20161014
  14. BERAPROST NA [Concomitant]
     Active Substance: BERAPROST SODIUM
  15. ADCIRCA [Concomitant]
     Active Substance: TADALAFIL
  16. OXYGEN. [Concomitant]
     Active Substance: OXYGEN
  17. PREDONINE [Concomitant]
     Active Substance: PREDNISOLONE

REACTIONS (2)
  - Respiratory disorder [Unknown]
  - Pneumonia [Unknown]

NARRATIVE: CASE EVENT DATE: 20181015
